FAERS Safety Report 23379159 (Version 1)
Quarter: 2024Q1

REPORT INFORMATION
  Report Type: Spontaneous
  Country: ES (occurrence: ES)
  Receive Date: 20240108
  Receipt Date: 20240108
  Transmission Date: 20240409
  Serious: Yes (Life-Threatening, Other)
  Sender: FDA-Public Use
  Company Number: ES-FreseniusKabi-FK202400319

PATIENT
  Age: 59 Year
  Sex: Female

DRUGS (2)
  1. OXALIPLATIN [Suspect]
     Active Substance: OXALIPLATIN
     Indication: Rectal cancer stage IV
     Dosage: AT 7TH CYCLE-DISCONTINUED DUE TO EVENTS
  2. OXALIPLATIN [Suspect]
     Active Substance: OXALIPLATIN
     Dosage: PRICK TESTS AT A CONCENTRATION OF 5 MG/ML AND INTRADERMAL TESTS AT 0.5 AND 5 MG/ML?RE-STARTED TWO YE

REACTIONS (2)
  - Kounis syndrome [Recovering/Resolving]
  - Anaphylactic reaction [Recovering/Resolving]
